FAERS Safety Report 6019099-4 (Version None)
Quarter: 2008Q4

REPORT INFORMATION
  Report Type: 
  Country: None (occurrence: None)
  Receive Date: 20081224
  Receipt Date: 20081211
  Transmission Date: 20090506
  Serious: Yes (Hospitalization)
  Sender: FDA-Public Use
  Company Number: GB-PFIZER INC-2008155429

PATIENT

DRUGS (3)
  1. BLINDED *PLACEBO [Suspect]
     Indication: BREAST CANCER
     Dosage: UNK
     Dates: start: 20080201, end: 20080801
  2. CELECOXIB [Suspect]
     Indication: BREAST CANCER
     Dosage: UNK
     Dates: start: 20080201, end: 20080801
  3. OMEPRAZOLE [Concomitant]
     Dosage: UNK
     Route: 048
     Dates: start: 20070101

REACTIONS (7)
  - BLOOD ALKALINE PHOSPHATASE INCREASED [None]
  - DEPRESSION [None]
  - DYSPNOEA [None]
  - MALAISE [None]
  - PLEURITIC PAIN [None]
  - STRESS [None]
  - URINARY TRACT INFECTION [None]
